FAERS Safety Report 11860157 (Version 3)
Quarter: 2016Q1

REPORT INFORMATION
  Report Type: Spontaneous
  Country: JP (occurrence: JP)
  Receive Date: 20151222
  Receipt Date: 20160122
  Transmission Date: 20160526
  Serious: Yes (Hospitalization, Other)
  Sender: FDA-Public Use
  Company Number: JP-PFIZER INC-2015459910

PATIENT
  Age: 2 Year
  Sex: Male
  Weight: 14 kg

DRUGS (3)
  1. BANAN [Suspect]
     Active Substance: CEFPODOXIME PROXETIL
     Indication: OTITIS MEDIA ACUTE
     Dosage: UNK
     Route: 048
     Dates: start: 20151013, end: 20151016
  2. BANAN [Suspect]
     Active Substance: CEFPODOXIME PROXETIL
     Indication: UPPER RESPIRATORY TRACT INFLAMMATION
  3. HUSCODE [Concomitant]
     Active Substance: CHLORPHENIRAMINE MALEAT\DIHYDROCODEINE PHOSPHATE\METHYLEPHEDRINE HYDROCHLORIDE, DL-
     Dosage: UNK
     Dates: start: 20151013, end: 20151016

REACTIONS (7)
  - Erythema [Recovered/Resolved]
  - Pneumonia [Recovered/Resolved]
  - Decreased appetite [Recovered/Resolved]
  - Oral mucosal erythema [Recovered/Resolved]
  - Pyrexia [Recovered/Resolved]
  - Rash [Recovered/Resolved]
  - Drug eruption [Recovered/Resolved]

NARRATIVE: CASE EVENT DATE: 20151014
